FAERS Safety Report 7224321-2 (Version None)
Quarter: 2011Q1

REPORT INFORMATION
  Report Type: 
  Country: None (occurrence: None)
  Receive Date: 20110113
  Receipt Date: 20110107
  Transmission Date: 20110831
  Serious: Yes (Other)
  Sender: FDA-Public Use
  Company Number: DE-PFIZER INC-2010146591

PATIENT
  Age: 63 Year
  Sex: Male
  Weight: 67.12 kg

DRUGS (1)
  1. CABASERIL [Suspect]
     Indication: PARKINSONISM
     Dosage: 1 MG DAILY
     Route: 048
     Dates: start: 20050301

REACTIONS (1)
  - OSTEOPOROSIS [None]
